FAERS Safety Report 6371003-5 (Version None)
Quarter: 2009Q3

REPORT INFORMATION
  Report Type: 
  Country: None (occurrence: None)
  Receive Date: 20090923
  Receipt Date: 20090911
  Transmission Date: 20100115
  Serious: Yes (Life-Threatening, Hospitalization)
  Sender: FDA-Public Use
  Company Number: DE-PFIZER INC-2009267869

PATIENT
  Age: 43 Year

DRUGS (10)
  1. BLINDED *NO SUBJECT DRUG [Suspect]
     Indication: PROSTATE CANCER
     Dosage: TDD 37.5 MG
     Route: 048
     Dates: start: 20090904
  2. BLINDED *PLACEBO [Suspect]
     Indication: PROSTATE CANCER
     Dosage: TDD 37.5 MG
     Route: 048
     Dates: start: 20090904
  3. BLINDED SUNITINIB MALATE [Suspect]
     Indication: PROSTATE CANCER
     Dosage: TDD 37.5 MG
     Route: 048
     Dates: start: 20090904
  4. PREDNISONE [Suspect]
     Indication: PROSTATE CANCER
     Dosage: 5 MG, 2X/DAY
     Route: 048
     Dates: start: 20090904
  5. PANTOPRAZOLE SODIUM [Concomitant]
     Dosage: UNK
     Route: 048
     Dates: start: 20090806
  6. BICALUTAMIDE [Concomitant]
     Dosage: UNK
     Route: 048
     Dates: start: 20071222, end: 20090826
  7. LEUPRORELIN [Concomitant]
     Dosage: UNK
     Route: 058
     Dates: start: 20071201
  8. CALCIUM [Concomitant]
     Dosage: UNK
     Route: 048
     Dates: start: 20071201
  9. VITAMIN D [Concomitant]
     Dosage: UNK
     Route: 048
     Dates: start: 20071201
  10. PREDNISOLONE [Concomitant]
     Dosage: UNK
     Route: 048
     Dates: start: 20090123, end: 20090826

REACTIONS (1)
  - HAEMORRHAGE [None]
